FAERS Safety Report 9705300 (Version 2)
Quarter: 2014Q1

REPORT INFORMATION
  Report Type: Report from Study
  Country: US (occurrence: US)
  Receive Date: 20131122
  Receipt Date: 20140116
  Transmission Date: 20141002
  Serious: Yes (Hospitalization)
  Sender: FDA-Public Use
  Company Number: US-ALEXION PHARMACEUTICALS INC.-A201303705

PATIENT
  Age: 86 Year
  Sex: Female
  Weight: 58.3 kg

DRUGS (6)
  1. SOLIRIS [Suspect]
     Indication: PAROXYSMAL NOCTURNAL HAEMOGLOBINURIA
     Dosage: 600 MG, QW
     Route: 042
     Dates: start: 20121106
  2. SOLIRIS [Suspect]
     Dosage: 900 MG, Q2W
     Route: 042
     Dates: start: 20121218, end: 20131203
  3. ALOE VERA [Concomitant]
     Dosage: 25 MG
     Route: 048
     Dates: start: 20131004
  4. GRAPE SEED [Concomitant]
     Dosage: 100 MG, QD
     Route: 048
  5. VITAMIN D NOS [Concomitant]
     Dosage: 5000 1, QD
     Route: 048
     Dates: start: 20130523
  6. COENZYME Q10 [Concomitant]

REACTIONS (1)
  - Cholelithiasis [Recovered/Resolved]
